FAERS Safety Report 14193087 (Version 5)
Quarter: 2018Q2

REPORT INFORMATION
  Report Type: Spontaneous
  Country: US (occurrence: US)
  Receive Date: 20171115
  Receipt Date: 20180501
  Transmission Date: 20180711
  Serious: Yes (Death, Life-Threatening, Hospitalization, Other)
  Sender: FDA-Public Use
  Company Number: US-009507513-1711USA004595

PATIENT
  Sex: Male
  Weight: 310.9 kg

DRUGS (1)
  1. KEYTRUDA [Suspect]
     Active Substance: PEMBROLIZUMAB
     Indication: NON-SMALL CELL LUNG CANCER
     Dosage: 200 MG, ONCE
     Route: 042
     Dates: start: 20171004, end: 20171004

REACTIONS (20)
  - Myocarditis [Fatal]
  - Chromaturia [Unknown]
  - Atrioventricular block complete [Fatal]
  - Myositis [Unknown]
  - Pulmonary embolism [Unknown]
  - Troponin increased [Unknown]
  - Feeling abnormal [Unknown]
  - Rhabdomyolysis [Fatal]
  - Atelectasis [Unknown]
  - Blood creatine phosphokinase abnormal [Unknown]
  - Conduction disorder [Fatal]
  - Pneumonitis [Fatal]
  - Autoimmune hepatitis [Not Recovered/Not Resolved]
  - Adverse event [Unknown]
  - Acute respiratory failure [Fatal]
  - Cardiac failure [Unknown]
  - Drug ineffective [Unknown]
  - Pericardial effusion [Unknown]
  - Soft tissue disorder [Unknown]
  - Brain natriuretic peptide abnormal [Unknown]

NARRATIVE: CASE EVENT DATE: 2017
